FAERS Safety Report 24305782 (Version 1)
Quarter: 2024Q3

REPORT INFORMATION
  Report Type: Report from Study
  Country: GB (occurrence: GB)
  Receive Date: 20240911
  Receipt Date: 20240911
  Transmission Date: 20241016
  Serious: Yes (Hospitalization)
  Sender: AMGEN
  Company Number: GB-AMGEN-GBRSL2024178550

PATIENT
  Age: 76 Year
  Sex: Female

DRUGS (1)
  1. ECULIZUMAB [Suspect]
     Active Substance: ECULIZUMAB
     Indication: Atypical haemolytic uraemic syndrome
     Dosage: 1200 MILLIGRAM, Q2WK
     Route: 065
     Dates: start: 20240808

REACTIONS (2)
  - Contusion [Unknown]
  - Syncope [Unknown]

NARRATIVE: CASE EVENT DATE: 20240826
